FAERS Safety Report 4313689-2 (Version None)
Quarter: 2004Q1

REPORT INFORMATION
  Report Type: 
  Country: None (occurrence: None)
  Receive Date: 20040305
  Receipt Date: 20040225
  Transmission Date: 20041129
  Serious: Yes (Hospitalization, Other)
  Sender: FDA-Public Use
  Company Number: 2004013119

PATIENT
  Sex: Female
  Weight: 90.7194 kg

DRUGS (1)
  1. LIPITOR [Suspect]
     Indication: BLOOD CHOLESTEROL INCREASED
     Dosage: DAILY

REACTIONS (5)
  - CARDIAC ARREST [None]
  - COMA [None]
  - FEELING ABNORMAL [None]
  - JAUNDICE [None]
  - SLEEP APNOEA SYNDROME [None]
